FAERS Safety Report 9307474 (Version 6)
Quarter: 2014Q2

REPORT INFORMATION
  Report Type: Report from Study
  Country: CA (occurrence: CA)
  Receive Date: 20130524
  Receipt Date: 20140409
  Transmission Date: 20141212
  Serious: Yes (Other)
  Sender: FDA-Public Use
  Company Number: CA-ROCHE-1167553

PATIENT
  Age: 36 Year
  Sex: Female
  Weight: 75 kg

DRUGS (8)
  1. ACTEMRA [Suspect]
     Indication: RHEUMATOID ARTHRITIS
     Route: 042
     Dates: start: 20111216
  2. ACTEMRA [Suspect]
     Route: 042
     Dates: start: 20120119
  3. ACTEMRA [Suspect]
     Route: 042
     Dates: start: 20130208
  4. ACTEMRA [Suspect]
     Route: 042
     Dates: start: 20130510
  5. ARAVA [Concomitant]
  6. LUPRON [Concomitant]
  7. CELEBREX [Concomitant]
  8. PANTOPRAZOLE [Concomitant]

REACTIONS (5)
  - Weight increased [Unknown]
  - Shoulder arthroplasty [Unknown]
  - Upper respiratory tract infection [Recovered/Resolved]
  - Hypotension [Unknown]
  - Malaise [Unknown]
